FAERS Safety Report 25934804 (Version 1)
Quarter: 2025Q4

REPORT INFORMATION
  Report Type: Spontaneous
  Country: EU (occurrence: EU)
  Receive Date: 20251017
  Receipt Date: 20251017
  Transmission Date: 20260117
  Serious: Yes (Hospitalization)
  Sender: RANBAXY
  Company Number: EU-AEMPS-1703974

PATIENT
  Age: 59 Year
  Sex: Male

DRUGS (4)
  1. AZITHROMYCIN [Suspect]
     Active Substance: AZITHROMYCIN
     Indication: Prophylaxis
     Dosage: 250 MILLIGRAM, 1DOSE/48HOUR, (1 ON) L, X YV
     Route: 048
     Dates: start: 20250205, end: 20250404
  2. SERTRALINE [Concomitant]
     Active Substance: SERTRALINE HYDROCHLORIDE
     Indication: Depression
     Dosage: 50 MILLIGRAM, DAILY, (1 SERVING) BREAKFAST
     Route: 048
     Dates: start: 20250306, end: 20250311
  3. PITAVASTATIN [Concomitant]
     Active Substance: PITAVASTATIN
     Indication: Dyslipidaemia
     Dosage: 1 MILLIGRAM, DAILY, 1 TABLET SCENE
     Route: 048
     Dates: start: 20250204, end: 20250404
  4. CRESEMBA [Concomitant]
     Active Substance: ISAVUCONAZONIUM SULFATE
     Indication: Lung opacity
     Dosage: 200 MILLIGRAM, DAILY, 200 MILIGRAMO (2 C?PSULA) CAD 24H
     Route: 048
     Dates: start: 20250204, end: 20250411

REACTIONS (2)
  - Hepatitis cholestatic [Recovered/Resolved]
  - Condition aggravated [Recovered/Resolved]

NARRATIVE: CASE EVENT DATE: 20250404
